FAERS Safety Report 6599010-8 (Version None)
Quarter: 2010Q1

REPORT INFORMATION
  Report Type: 
  Country: None (occurrence: None)
  Receive Date: 20100224
  Receipt Date: 20090630
  Transmission Date: 20100710
  Serious: No
  Sender: FDA-Public Use
  Company Number: US-BRISTOL-MYERS SQUIBB COMPANY-14671911

PATIENT
  Age: 55 Year
  Sex: Female

DRUGS (8)
  1. METFORMIN HCL [Suspect]
     Indication: DIABETES MELLITUS
     Dosage: INTERRUPTED ON 21-MAY-2009.
     Route: 048
     Dates: start: 20090501
  2. SYMLIN [Suspect]
     Indication: DIABETES MELLITUS
     Dosage: 1 DF=10 UNITS
     Route: 048
     Dates: start: 20090501, end: 20090521
  3. LEVEMIR [Concomitant]
  4. HUMALOG [Concomitant]
  5. LISINOPRIL [Concomitant]
  6. HYDROCHLOROTHIAZIDE [Concomitant]
  7. CARVEDILOL [Concomitant]
  8. LOVASTATIN [Concomitant]
     Dosage: 1 DF=20 MT

REACTIONS (4)
  - ADVERSE EVENT [None]
  - DIARRHOEA [None]
  - DYSPEPSIA [None]
  - NAUSEA [None]
